FAERS Safety Report 12941130 (Version 2)
Quarter: 2017Q2

REPORT INFORMATION
  Report Type: Spontaneous
  Country: US (occurrence: US)
  Receive Date: 20161115
  Receipt Date: 20170426
  Transmission Date: 20170830
  Serious: No
  Sender: FDA-Public Use
  Company Number: US-JNJFOC-20161103268

PATIENT
  Age: 13 Year
  Sex: Male
  Weight: 56.7 kg

DRUGS (4)
  1. RISPERDAL [Suspect]
     Active Substance: RISPERIDONE
     Indication: ABNORMAL BEHAVIOUR
     Dosage: 1/2 TAB BID
     Route: 048
     Dates: start: 2008, end: 2009
  2. RISPERIDONE. [Suspect]
     Active Substance: RISPERIDONE
     Indication: ABNORMAL BEHAVIOUR
     Route: 048
  3. RISPERIDONE. [Suspect]
     Active Substance: RISPERIDONE
     Indication: MOOD SWINGS
     Route: 048
  4. RISPERDAL [Suspect]
     Active Substance: RISPERIDONE
     Indication: MOOD SWINGS
     Dosage: 1/2 TAB BID
     Route: 048
     Dates: start: 2008, end: 2009

REACTIONS (6)
  - Somnolence [Unknown]
  - Gynaecomastia [Unknown]
  - Fatigue [Unknown]
  - Dizziness [Unknown]
  - Abnormal weight gain [Unknown]
  - Mood swings [Unknown]

NARRATIVE: CASE EVENT DATE: 200803
